FAERS Safety Report 5403735-7 (Version None)
Quarter: 2007Q3

REPORT INFORMATION
  Report Type: 
  Country: None (occurrence: None)
  Receive Date: 20070802
  Receipt Date: 20070723
  Transmission Date: 20080115
  Serious: Yes (Other)
  Sender: FDA-Public Use
  Company Number: TH-JNJFOC-20070705299

PATIENT
  Age: 12 Year
  Sex: Female

DRUGS (3)
  1. TOPIRAMATE [Suspect]
     Indication: EPILEPSY
  2. PHENOBARBITAL TAB [Suspect]
     Indication: DRUG USE FOR UNKNOWN INDICATION
  3. LAMOTRIGINE [Suspect]
     Indication: DRUG USE FOR UNKNOWN INDICATION

REACTIONS (3)
  - CEREBELLAR HAEMORRHAGE [None]
  - CONVULSION [None]
  - DELAYED RECOVERY FROM ANAESTHESIA [None]
